FAERS Safety Report 7019062-0 (Version None)
Quarter: 2010Q3

REPORT INFORMATION
  Report Type: 
  Country: None (occurrence: None)
  Receive Date: 20100928
  Receipt Date: 20100928
  Transmission Date: 20110219
  Serious: Yes (Other)
  Sender: FDA-Public Use
  Company Number: A0881449A

PATIENT
  Sex: Male

DRUGS (2)
  1. LOVAZA [Suspect]
     Dosage: 2G PER DAY
     Route: 048
  2. UNKNOWN [Concomitant]

REACTIONS (2)
  - ABDOMINAL DISTENSION [None]
  - ATRIAL FIBRILLATION [None]
